FAERS Safety Report 4892256-6 (Version None)
Quarter: 2006Q1

REPORT INFORMATION
  Report Type: 
  Country: None (occurrence: None)
  Receive Date: 20060126
  Receipt Date: 20060110
  Transmission Date: 20060701
  Serious: Yes (Hospitalization, Other)
  Sender: FDA-Public Use
  Company Number: 2006PK00128

PATIENT
  Age: 23190 Day
  Sex: Female
  Weight: 70 kg

DRUGS (2)
  1. NOLVADEX [Suspect]
     Indication: BREAST CANCER
     Route: 048
     Dates: start: 20001001, end: 20021217
  2. ARIMIDEX [Suspect]
     Indication: BREAST CANCER
     Route: 048
     Dates: start: 20021218

REACTIONS (2)
  - ARTERIAL RESTENOSIS [None]
  - ARTERIAL STENOSIS LIMB [None]
